FAERS Safety Report 9766110 (Version 1)
Quarter: 2013Q4

REPORT INFORMATION
  Report Type: Spontaneous
  Country: US (occurrence: None)
  Receive Date: 20131213
  Receipt Date: 20131213
  Transmission Date: 20140711
  Serious: Yes (Other)
  Sender: FDA-Public Use
  Company Number: 2013SA030208

PATIENT
  Sex: Female

DRUGS (2)
  1. ICY HOT CREAM / UNKNOWN / UNKNOWN [Suspect]
     Indication: ARTHRITIS
     Dosage: ; UNKNOWN ; TOPICAL
  2. MENTHOL [Suspect]
     Indication: ARTHRITIS
     Dosage: ; UNKNOWN ; TOPICAL
     Dates: start: 200710

REACTIONS (4)
  - Burns third degree [None]
  - Application site burn [None]
  - Pain [None]
  - Scar [None]
